FAERS Safety Report 12390017 (Version 2)
Quarter: 2016Q2

REPORT INFORMATION
  Report Type: Spontaneous
  Country: FR (occurrence: FR)
  Receive Date: 20160520
  Receipt Date: 20160602
  Transmission Date: 20160815
  Serious: Yes (Death, Hospitalization)
  Sender: FDA-Public Use
  Company Number: PHHY2016FR067559

PATIENT
  Age: 53 Year
  Sex: Female
  Weight: 83 kg

DRUGS (2)
  1. PACLITAXEL SANDOZ [Suspect]
     Active Substance: PACLITAXEL
     Indication: BREAST CANCER
     Route: 042
     Dates: start: 20110512, end: 201106
  2. ENDOXAN [Concomitant]
     Active Substance: CYCLOPHOSPHAMIDE
     Indication: BREAST CANCER
     Route: 065

REACTIONS (17)
  - Tachycardia [Fatal]
  - Dyspnoea [Fatal]
  - Dyspepsia [Fatal]
  - Fatigue [Fatal]
  - Anxiety [Fatal]
  - Pain [Fatal]
  - Epistaxis [Fatal]
  - Pulmonary arterial hypertension [Unknown]
  - Chronic myelomonocytic leukaemia [Fatal]
  - Hyperthermia [Fatal]
  - Neuromuscular toxicity [Fatal]
  - Hypotension [Fatal]
  - Insomnia [Fatal]
  - Pericardial effusion [Fatal]
  - Rash [Fatal]
  - Dry mouth [Fatal]
  - Generalised oedema [Not Recovered/Not Resolved]

NARRATIVE: CASE EVENT DATE: 20110520
